FAERS Safety Report 7204556-5 (Version None)
Quarter: 2010Q4

REPORT INFORMATION
  Report Type: 
  Country: None (occurrence: None)
  Receive Date: 20101230
  Receipt Date: 20101220
  Transmission Date: 20110411
  Serious: Yes (Other)
  Sender: FDA-Public Use
  Company Number: PHHY2010CO87179

PATIENT
  Age: 43 Year
  Sex: Male

DRUGS (10)
  1. AFINITOR [Suspect]
     Indication: NEUROENDOCRINE TUMOUR
     Dosage: 10 MG, DAILY
     Route: 048
     Dates: start: 20100801
  2. LANREOTIDE [Concomitant]
     Dosage: 60 MG, UNK
     Route: 058
  3. HYDROMORPHONE HCL [Concomitant]
     Dosage: EVERY 4 HOURS
  4. ENOXAPARIN SODIUM [Concomitant]
     Dosage: 80/80 UNK
  5. OMEPRAZOLE [Concomitant]
     Dosage: 40-20
  6. BETALOC ZOK [Concomitant]
  7. HYDROCHLOROTHIAZIDE [Concomitant]
  8. AMLODIPIN ^ORIFARM^ [Concomitant]
  9. GABAPENTIN [Concomitant]
  10. GEMFIBROZIL [Concomitant]

REACTIONS (6)
  - ASTHENIA [None]
  - CHILLS [None]
  - CONDITION AGGRAVATED [None]
  - HYPERGLYCAEMIA [None]
  - OEDEMA [None]
  - VENOUS THROMBOSIS [None]
